FAERS Safety Report 4440447-0 (Version None)
Quarter: 2004Q3

REPORT INFORMATION
  Report Type: 
  Country: None (occurrence: None)
  Receive Date: 20040901
  Receipt Date: 20040901
  Transmission Date: 20050211
  Serious: No
  Sender: FDA-Public Use
  Company Number: None

PATIENT
  Age: 53 Year
  Sex: Female

DRUGS (5)
  1. VALPROIC ACID [Suspect]
     Dosage: 1500 MG QD ORAL
     Route: 048
  2. QUETIAPINE [Concomitant]
  3. VENLAFAXINE HCL [Concomitant]
  4. PROPRANOLOL [Concomitant]
  5. CLONAZEPAM [Concomitant]

REACTIONS (2)
  - ABDOMINAL DISCOMFORT [None]
  - MENTAL DISORDER [None]
